FAERS Safety Report 9665302 (Version 1)
Quarter: 2013Q4

REPORT INFORMATION
  Report Type: Report from Study
  Country: CA (occurrence: CA)
  Receive Date: 20131101
  Receipt Date: 20131101
  Transmission Date: 20140711
  Serious: Yes (Other)
  Sender: FDA-Public Use
  Company Number: CA-ROCHE-1295803

PATIENT
  Sex: Female
  Weight: 79.4 kg

DRUGS (12)
  1. RITUXAN [Suspect]
     Indication: POLYMYOSITIS
     Route: 042
     Dates: start: 20120627
  2. DIPHENHYDRAMINE HCL [Concomitant]
     Indication: PREMEDICATION
     Route: 048
     Dates: start: 20120627
  3. METHYLPREDNISOLONE [Concomitant]
     Indication: PREMEDICATION
     Route: 042
     Dates: start: 20120627
  4. FIORINAL (CANADA) [Concomitant]
  5. NADOLOL [Concomitant]
  6. PREDNISONE [Concomitant]
  7. PROLIA [Concomitant]
  8. HYDROCHLOROTHIAZIDE [Concomitant]
  9. REACTINE (CANADA) [Concomitant]
  10. DOMPERIDONE [Concomitant]
  11. DEXILANT [Concomitant]
  12. IVIG [Concomitant]

REACTIONS (5)
  - Depression [Unknown]
  - Blood pressure increased [Unknown]
  - Headache [Not Recovered/Not Resolved]
  - Blood creatine phosphokinase increased [Unknown]
  - Off label use [Unknown]
